FAERS Safety Report 5939189-1 (Version None)
Quarter: 2008Q4

REPORT INFORMATION
  Report Type: 
  Country: None (occurrence: None)
  Receive Date: 20081103
  Receipt Date: 20081030
  Transmission Date: 20090506
  Serious: No
  Sender: FDA-Public Use
  Company Number: BR-ASTRAZENECA-2008UW24478

PATIENT
  Age: 75 Year
  Sex: Female

DRUGS (5)
  1. CRESTOR [Suspect]
     Route: 048
     Dates: start: 20080501
  2. ATACAND [Concomitant]
  3. SUSTRATE [Concomitant]
  4. PLAVIX [Concomitant]
  5. LIPLES [Concomitant]

REACTIONS (1)
  - MYALGIA [None]
